FAERS Safety Report 24069617 (Version 1)
Quarter: 2024Q3

REPORT INFORMATION
  Report Type: Report from Study
  Country: RO (occurrence: RO)
  Receive Date: 20240710
  Receipt Date: 20240710
  Transmission Date: 20241016
  Serious: No
  Sender: ROCHE
  Company Number: RO-ROCHE-3556650

PATIENT
  Age: 62 Year
  Sex: Female
  Weight: 56.0 kg

DRUGS (2)
  1. PHESGO [Suspect]
     Active Substance: HYALURONIDASE-ZZXF\PERTUZUMAB\TRASTUZUMAB
     Indication: Breast cancer
     Route: 058
  2. BETAHISTINE [Concomitant]
     Active Substance: BETAHISTINE

REACTIONS (8)
  - Peripheral swelling [Unknown]
  - Memory impairment [Unknown]
  - Fatigue [Unknown]
  - Vertigo [Unknown]
  - Insomnia [Unknown]
  - Visual impairment [Unknown]
  - Illness [Unknown]
  - Dizziness [Unknown]
